FAERS Safety Report 8493158-9 (Version None)
Quarter: 2012Q2

REPORT INFORMATION
  Report Type: 
  Country: None (occurrence: None)
  Receive Date: 20120627
  Receipt Date: 20120615
  Transmission Date: 20120825
  Serious: Yes (Hospitalization)
  Sender: FDA-Public Use
  Company Number: US-JNJFOC-20120606872

PATIENT
  Age: 62 Year
  Sex: Male
  Weight: 108 kg

DRUGS (2)
  1. DECITABINE [Suspect]
     Indication: ACUTE MYELOID LEUKAEMIA
     Dosage: 20 MG/M2, INTRAVENOUS
     Route: 042
     Dates: start: 20120519, end: 20120528
  2. BORTEZOMIB [Suspect]
     Indication: ACUTE MYELOID LEUKAEMIA
     Dosage: 1.3 MG/M2, SUBCUTANEOUS
     Route: 058
     Dates: start: 20120518, end: 20120528

REACTIONS (11)
  - BLOOD PRESSURE DECREASED [None]
  - POST PROCEDURAL COMPLICATION [None]
  - DIZZINESS [None]
  - FLUID OVERLOAD [None]
  - FATIGUE [None]
  - NON-CARDIAC CHEST PAIN [None]
  - HAEMOGLOBIN DECREASED [None]
  - ARTHRITIS BACTERIAL [None]
  - CONDITION AGGRAVATED [None]
  - FEBRILE NEUTROPENIA [None]
  - DYSPNOEA EXERTIONAL [None]
